FAERS Safety Report 9778650 (Version 1)
Quarter: 2013Q4

REPORT INFORMATION
  Report Type: Spontaneous
  Country: US (occurrence: None)
  Receive Date: 20131219
  Receipt Date: 20131219
  Transmission Date: 20140711
  Serious: Yes (Hospitalization, Other)
  Sender: FDA-Public Use
  Company Number: 2013-US-004275

PATIENT
  Age: 29 Year
  Sex: Female

DRUGS (1)
  1. XYREM (SODIUM OXYBATE) ORAL SOLUTION, 500MG/ML [Suspect]
     Indication: NARCOLEPSY
     Route: 048
     Dates: start: 200909

REACTIONS (10)
  - Loss of consciousness [None]
  - Gastroenteritis viral [None]
  - Ear infection [None]
  - Face injury [None]
  - Dehydration [None]
  - Pain in jaw [None]
  - Ear pain [None]
  - Toothache [None]
  - Dizziness [None]
  - Balance disorder [None]
